FAERS Safety Report 8089934-7 (Version None)
Quarter: 2012Q1

REPORT INFORMATION
  Report Type: 
  Country: None (occurrence: None)
  Receive Date: 20120129
  Receipt Date: 20111021
  Transmission Date: 20120608
  Serious: No
  Sender: FDA-Public Use
  Company Number: US-ABBOTT-11P-163-0867401-00

PATIENT
  Age: 62 Year
  Sex: Female

DRUGS (5)
  1. HUMIRA [Suspect]
     Indication: PSORIASIS
     Dates: start: 20111004
  2. IBUPROFEN (ADVIL) [Concomitant]
     Indication: HEADACHE
  3. PROZAC [Concomitant]
     Indication: ANXIETY
     Dosage: AT BEDTIME
  4. ASPIRIN [Concomitant]
     Indication: PRODUCT USED FOR UNKNOWN INDICATION
     Dosage: DAILY
  5. AMBIEN [Concomitant]
     Indication: INSOMNIA

REACTIONS (6)
  - NAUSEA [None]
  - ERYTHEMA [None]
  - PAIN [None]
  - CHILLS [None]
  - VOMITING [None]
  - PAIN OF SKIN [None]
